FAERS Safety Report 19484129 (Version 1)
Quarter: 2021Q3

REPORT INFORMATION
  Report Type: Spontaneous
  Country: US (occurrence: US)
  Receive Date: 20210701
  Receipt Date: 20210701
  Transmission Date: 20211014
  Serious: Yes (Hospitalization, Other)
  Sender: FDA-Public Use
  Company Number: US-ELI_LILLY_AND_COMPANY-US202106012842

PATIENT
  Sex: Female

DRUGS (1)
  1. FORTEO [Suspect]
     Active Substance: TERIPARATIDE
     Indication: PRODUCT USED FOR UNKNOWN INDICATION
     Dosage: 20 UG, UNKNOWN
     Route: 065
     Dates: start: 202002

REACTIONS (6)
  - COVID-19 pneumonia [Unknown]
  - Thoracic vertebral fracture [Unknown]
  - Pulmonary fibrosis [Unknown]
  - Depression [Unknown]
  - Compression fracture [Unknown]
  - Lung disorder [Unknown]
